FAERS Safety Report 9253993 (Version 5)
Quarter: 2013Q4

REPORT INFORMATION
  Report Type: Spontaneous
  Country: US (occurrence: None)
  Receive Date: 20130419
  Receipt Date: 20131101
  Transmission Date: 20140711
  Serious: Yes (Hospitalization, Other)
  Sender: FDA-Public Use
  Company Number: 2012-003759

PATIENT
  Age: 70 Year
  Sex: Female

DRUGS (14)
  1. ACTONEL (RISEDRONATE SODIUM) TABLET, 35MG [Suspect]
     Indication: OSTEOPOROSIS
     Route: 048
     Dates: start: 200312, end: 200605
  2. ACTONEL (RISEDRONATE SODIUM) TABLET, 35MG [Suspect]
     Indication: OSTEOPOROSIS PROPHYLAXIS
     Route: 048
     Dates: start: 200312, end: 200605
  3. FOSAMAX (ALENDRONATE SODIUM) [Suspect]
     Indication: OSTEOPOROSIS
     Route: 048
     Dates: start: 2007, end: 200810
  4. FOSAMAX (ALENDRONATE SODIUM) [Suspect]
     Indication: OSTEOPOROSIS PROPHYLAXIS
     Route: 048
     Dates: start: 2007, end: 200810
  5. ALENDRONATE (ALENDRONATE SODIUM) [Suspect]
     Indication: OSTEOPOROSIS
     Route: 048
     Dates: start: 20081030, end: 201002
  6. ALENDRONATE (ALENDRONATE SODIUM) [Suspect]
     Indication: OSTEOPOROSIS PROPHYLAXIS
     Route: 048
     Dates: start: 20081030, end: 201002
  7. FOSAMAX PLUS D [Suspect]
     Dosage: ALENDRONATE 70 MG WEEKLY, ORAL
     Route: 048
     Dates: start: 200605, end: 2007
  8. ALPRAZOLAM (ALPRAZOLAM) [Concomitant]
  9. AMITRIPTYLINE (AMITRIPTYLINE) [Concomitant]
  10. NEXIUM [Concomitant]
  11. PROPOXYPHENE NAPSYLATE (DEXTROPROPOXYPHENE NAPSILATE) [Concomitant]
  12. LAMISIL [Concomitant]
  13. CALCIUM (CALCIUIM) [Concomitant]
  14. VITAMIN D /00318501/ (COLECALCIFEROL) [Concomitant]

REACTIONS (10)
  - Femur fracture [None]
  - Gait disturbance [None]
  - Stress fracture [None]
  - Condition aggravated [None]
  - Fall [None]
  - Pain in extremity [None]
  - Fracture nonunion [None]
  - Pathological fracture [None]
  - Low turnover osteopathy [None]
  - Osteogenesis imperfecta [None]
